FAERS Safety Report 9290763 (Version 1)
Quarter: 2013Q2

REPORT INFORMATION
  Report Type: Spontaneous
  Country: US (occurrence: US)
  Receive Date: 20130515
  Receipt Date: 20130515
  Transmission Date: 20140414
  Serious: Yes (Hospitalization)
  Sender: FDA-Public Use
  Company Number: US-ABBOTT-13P-163-1089598-00

PATIENT
  Age: 32 Year
  Sex: 0

DRUGS (3)
  1. HUMIRA [Suspect]
     Indication: PSORIASIS
  2. HUMIRA [Suspect]
     Indication: PSORIATIC ARTHROPATHY
  3. PAIN MEDICINE [Concomitant]
     Indication: PAIN

REACTIONS (17)
  - Hyperhidrosis [Unknown]
  - Feeling cold [Unknown]
  - Fatigue [Unknown]
  - Emotional disorder [Unknown]
  - Tearfulness [Unknown]
  - Hypertension [Unknown]
  - Hypotension [Unknown]
  - Discomfort [Unknown]
  - Flushing [Unknown]
  - Erythema [Unknown]
  - Nausea [Unknown]
  - Vomiting [Unknown]
  - Hypophagia [Unknown]
  - Fluid intake reduced [Unknown]
  - Arthritis [Unknown]
  - Lupus-like syndrome [Unknown]
  - Dehydration [Unknown]
